FAERS Safety Report 4831588-4 (Version None)
Quarter: 2005Q4

REPORT INFORMATION
  Report Type: 
  Country: None (occurrence: None)
  Receive Date: 20051118
  Receipt Date: 20050810
  Transmission Date: 20060501
  Serious: Yes (Hospitalization)
  Sender: FDA-Public Use
  Company Number: US-MERCK-0508USA01989

PATIENT
  Age: 57 Year
  Sex: Male
  Weight: 118 kg

DRUGS (3)
  1. VIOXX [Suspect]
     Indication: MONARTHRITIS
     Route: 048
     Dates: start: 19991001, end: 20020301
  2. VIOXX [Suspect]
     Indication: CARTILAGE INJURY
     Route: 048
     Dates: start: 19991001, end: 20020301
  3. ZIAC [Concomitant]
     Route: 065

REACTIONS (5)
  - BLOOD CHOLESTEROL INCREASED [None]
  - COLOSTOMY [None]
  - FOOD ALLERGY [None]
  - GALLBLADDER DISORDER [None]
  - MYOCARDIAL INFARCTION [None]
